FAERS Safety Report 22205208 (Version 2)
Quarter: 2023Q2

REPORT INFORMATION
  Report Type: Report from Study
  Country: US (occurrence: US)
  Receive Date: 20230413
  Receipt Date: 20230418
  Transmission Date: 20230722
  Serious: No
  Sender: FDA-Public Use
  Company Number: US-MYLANLABS-2023M1037858

PATIENT
  Age: 64 Year
  Sex: Female

DRUGS (1)
  1. TOBI [Suspect]
     Active Substance: TOBRAMYCIN
     Indication: Product used for unknown indication
     Dosage: UNK
     Route: 065

REACTIONS (1)
  - Wheezing [Unknown]
